FAERS Safety Report 6876267-7 (Version None)
Quarter: 2010Q3

REPORT INFORMATION
  Report Type: 
  Country: None (occurrence: None)
  Receive Date: 20100727
  Receipt Date: 20100719
  Transmission Date: 20110219
  Serious: Yes (Hospitalization)
  Sender: FDA-Public Use
  Company Number: B0634957A

PATIENT
  Age: 82 Year
  Sex: Male

DRUGS (5)
  1. AVODART [Suspect]
     Indication: BENIGN PROSTATIC HYPERPLASIA
     Dosage: .5G PER DAY
     Route: 048
     Dates: start: 20070502
  2. XATRAL [Concomitant]
     Dosage: 10MG PER DAY
     Dates: start: 20070502
  3. TICLOPIDINE HYDROCHLORIDE [Concomitant]
     Dates: start: 20070502
  4. FINASTERIDE [Concomitant]
     Dates: start: 20070502
  5. TOCOLPHA CAP [Concomitant]
     Dosage: 300MG THREE TIMES PER DAY
     Dates: start: 20070530, end: 20080703

REACTIONS (1)
  - DIARRHOEA INFECTIOUS [None]
